FAERS Safety Report 7636121-X (Version None)
Quarter: 2011Q3

REPORT INFORMATION
  Report Type: 
  Country: None (occurrence: None)
  Receive Date: 20110722
  Receipt Date: 20110722
  Transmission Date: 20111222
  Serious: Yes (Other)
  Sender: FDA-Public Use
  Company Number: None

PATIENT
  Age: 80 Year
  Sex: Female
  Weight: 48.0813 kg

DRUGS (1)
  1. AMOXICILLIN AND CLAVULANATE POTASSIUM [Suspect]
     Indication: SINUSITIS
     Dosage: 1 TEASPOON FUL EVERY 6 HR ORAL
     Route: 048
     Dates: start: 20110621, end: 20110630

REACTIONS (4)
  - NAUSEA [None]
  - VOMITING [None]
  - RASH [None]
  - HYPOPHAGIA [None]
